FAERS Safety Report 25179707 (Version 1)
Quarter: 2025Q2

REPORT INFORMATION
  Report Type: Spontaneous
  Country: CN (occurrence: CN)
  Receive Date: 20250409
  Receipt Date: 20250409
  Transmission Date: 20250716
  Serious: Yes (Life-Threatening, Other)
  Sender: MERCK SHARP AND DOHME
  Company Number: CN-009507513-2270388

PATIENT
  Age: 61 Year
  Sex: Male

DRUGS (3)
  1. CILASTATIN SODIUM\IMIPENEM [Suspect]
     Active Substance: CILASTATIN SODIUM\IMIPENEM
     Indication: Pneumonia
     Route: 041
     Dates: start: 20250324, end: 20250325
  2. VANCOMYCIN [Concomitant]
     Active Substance: VANCOMYCIN
     Indication: Pneumonia
     Route: 041
     Dates: start: 20250324, end: 20250327
  3. VORICONAZOLE [Concomitant]
     Active Substance: VORICONAZOLE
     Indication: Pneumonia
     Route: 041
     Dates: start: 20250324, end: 20250326

REACTIONS (8)
  - Seizure [Recovering/Resolving]
  - Respiratory failure [Unknown]
  - Plasma cell myeloma [Unknown]
  - Pneumonia bacterial [Unknown]
  - Pneumonia fungal [Unknown]
  - Lacunar infarction [Unknown]
  - Klebsiella infection [Unknown]
  - Oxygen saturation decreased [Recovering/Resolving]

NARRATIVE: CASE EVENT DATE: 20250301
